FAERS Safety Report 9821009 (Version 1)
Quarter: 2014Q1

REPORT INFORMATION
  Report Type: Spontaneous
  Country: BR (occurrence: BR)
  Receive Date: 20140116
  Receipt Date: 20140116
  Transmission Date: 20141002
  Serious: Yes (Other)
  Sender: FDA-Public Use
  Company Number: BR-BRISTOL-MYERS SQUIBB COMPANY-19975465

PATIENT
  Age: 63 Year
  Sex: Male
  Weight: 86 kg

DRUGS (7)
  1. BARACLUDE TABS 1.0 MG [Suspect]
     Indication: HEPATITIS
     Route: 048
     Dates: start: 2007
  2. CILOSTAZOL [Concomitant]
     Indication: CARDIOVASCULAR DISORDER
     Dosage: 1DF: 2TABS?CILOSTAZOL 50MG
     Route: 048
  3. PROGRAF [Concomitant]
     Indication: PROPHYLAXIS AGAINST TRANSPLANT REJECTION
     Route: 048
  4. MYCOPHENOLATE SODIUM [Concomitant]
     Indication: PROPHYLAXIS AGAINST TRANSPLANT REJECTION
  5. OMEPRAZOLE [Concomitant]
     Indication: PROPHYLAXIS AGAINST GASTROINTESTINAL ULCER
  6. ENALAPRIL [Concomitant]
  7. INSULIN NPH HUMAN [Concomitant]
     Indication: DIABETES MELLITUS

REACTIONS (6)
  - Diarrhoea [Recovering/Resolving]
  - Peripheral arterial occlusive disease [Recovered/Resolved]
  - Thermal burn [Recovered/Resolved]
  - Nail infection [Recovered/Resolved]
  - Nervousness [Not Recovered/Not Resolved]
  - Expired drug administered [Unknown]
